FAERS Safety Report 17158860 (Version 1)
Quarter: 2019Q4

REPORT INFORMATION
  Report Type: Spontaneous
  Country: US (occurrence: US)
  Receive Date: 20191216
  Receipt Date: 20191216
  Transmission Date: 20200122
  Serious: No
  Sender: FDA-Public Use
  Company Number: US-BAYER-2019-221184

PATIENT
  Age: 89 Year
  Sex: Male

DRUGS (7)
  1. ALEVE PM [Suspect]
     Active Substance: DIPHENHYDRAMINE HYDROCHLORIDE\NAPROXEN SODIUM
     Indication: PAIN
     Dosage: UNK
     Route: 048
     Dates: start: 201912
  2. ALKA-SELTZER PLUS COLD FORMULA DAY/NIGHT EFFERVESCENT COMBI NIGHT (ASPIRIN\DEXTROMETHORPHAN\DOXYLAMINE\PHENYLEPHRINE) [Suspect]
     Active Substance: ASPIRIN\DEXTROMETHORPHAN\DOXYLAMINE\PHENYLEPHRINE
     Indication: SLEEP DISORDER THERAPY
  3. TRAMADOL. [Concomitant]
     Active Substance: TRAMADOL
  4. TAMSULOSIN [Concomitant]
     Active Substance: TAMSULOSIN
  5. ALKA-SELTZER PLUS DAY NON DROWSY COLD MEDICINE CITRUS [Suspect]
     Active Substance: ASPIRIN\DEXTROMETHORPHAN HYDROBROMIDE\PHENYLEPHRINE BITARTRATE
  6. TYLENOL [Concomitant]
     Active Substance: ACETAMINOPHEN
  7. ALKA-SELTZER PLUS COLD FORMULA DAY/NIGHT EFFERVESCENT COMBI NIGHT (ASPIRIN\DEXTROMETHORPHAN\DOXYLAMINE\PHENYLEPHRINE) [Suspect]
     Active Substance: ASPIRIN\DEXTROMETHORPHAN\DOXYLAMINE\PHENYLEPHRINE
     Indication: DYSPEPSIA

REACTIONS (2)
  - Product use in unapproved indication [Unknown]
  - Therapeutic response shortened [Unknown]

NARRATIVE: CASE EVENT DATE: 20191205
